FAERS Safety Report 13538735 (Version 1)
Quarter: 2017Q2

REPORT INFORMATION
  Report Type: Spontaneous
  Country: CA (occurrence: CA)
  Receive Date: 20170512
  Receipt Date: 20170512
  Transmission Date: 20170830
  Serious: Yes (Other)
  Sender: FDA-Public Use
  Company Number: CA-TEVA-768516ACC

PATIENT
  Age: 7 Year
  Sex: Female
  Weight: 19 kg

DRUGS (10)
  1. VINCRISTINE SULFATE INJECTION USP [Suspect]
     Active Substance: VINCRISTINE SULFATE
     Indication: NEUROBLASTOMA
     Route: 042
  2. ETOPOSIDE. [Concomitant]
     Active Substance: ETOPOSIDE
  3. INTERLEUKIN-2 [Concomitant]
     Active Substance: ALDESLEUKIN
  4. DOXORUBICIN HYDROCHLORIDE INJECTION [Concomitant]
     Active Substance: DOXORUBICIN HYDROCHLORIDE
  5. CH14.18 [Concomitant]
     Active Substance: DINUTUXIMAB
  6. CYCLOPHOSPHAMIDE. [Concomitant]
     Active Substance: CYCLOPHOSPHAMIDE
  7. IFOSFAMIDE FOR INJECTION, USP [Concomitant]
  8. VINCRISTINE SULFATE INJECTION USP [Suspect]
     Active Substance: VINCRISTINE SULFATE
     Route: 042
  9. TOPOTECAN [Concomitant]
     Active Substance: TOPOTECAN HYDROCHLORIDE
  10. CISPLATIN INJECTION [Suspect]
     Active Substance: CISPLATIN

REACTIONS (1)
  - Ototoxicity [Unknown]
